FAERS Safety Report 17988001 (Version 1)
Quarter: 2020Q3

REPORT INFORMATION
  Report Type: Spontaneous
  Country: US (occurrence: US)
  Receive Date: 20200706
  Receipt Date: 20200706
  Transmission Date: 20201103
  Serious: Yes (Hospitalization)
  Sender: FDA-Public Use
  Company Number: None

PATIENT
  Age: 45 Year
  Sex: Female

DRUGS (14)
  1. RELISTOR [Concomitant]
     Active Substance: METHYLNALTREXONE BROMIDE
  2. SUCRALFATE. [Concomitant]
     Active Substance: SUCRALFATE
  3. HUMIRA [Suspect]
     Active Substance: ADALIMUMAB
     Indication: PRODUCT USED FOR UNKNOWN INDICATION
     Dosage: ?          OTHER FREQUENCY:Q2WKS;?
     Route: 058
     Dates: start: 20200115
  4. FLUOXETINE [Concomitant]
     Active Substance: FLUOXETINE HYDROCHLORIDE
  5. HYDROCO/APAP [Concomitant]
     Active Substance: ACETAMINOPHEN\HYDROCODONE
  6. ZONISAMIDE. [Concomitant]
     Active Substance: ZONISAMIDE
  7. FAMOTIDINE. [Concomitant]
     Active Substance: FAMOTIDINE
  8. LEVOTHYROXIN [Concomitant]
     Active Substance: LEVOTHYROXINE
  9. METHADONE [Concomitant]
     Active Substance: METHADONE HYDROCHLORIDE
  10. PANTOPRAZOLE [Concomitant]
     Active Substance: PANTOPRAZOLE
  11. TOPIRAMATE. [Concomitant]
     Active Substance: TOPIRAMATE
  12. ZONISAMIDE. [Suspect]
     Active Substance: ZONISAMIDE
  13. BACLOFEN. [Concomitant]
     Active Substance: BACLOFEN
  14. ONDANSETRON [Concomitant]
     Active Substance: ONDANSETRON

REACTIONS (2)
  - Product substitution issue [None]
  - Hypersensitivity [None]

NARRATIVE: CASE EVENT DATE: 20200615
